FAERS Safety Report 13349938 (Version 1)
Quarter: 2017Q1

REPORT INFORMATION
  Report Type: Spontaneous
  Country: US (occurrence: US)
  Receive Date: 20170318
  Receipt Date: 20170318
  Transmission Date: 20170429
  Serious: Yes (Disabling, Other)
  Sender: FDA-Public Use
  Company Number: None

PATIENT
  Age: 13 Year
  Sex: Male
  Weight: 117 kg

DRUGS (8)
  1. FLAX MEAL [Concomitant]
  2. MIRALAX [Suspect]
     Active Substance: POLYETHYLENE GLYCOL 3350
     Indication: CONSTIPATION
     Dosage: ?          QUANTITY:17 MG;?
     Route: 048
  3. ADDERALL [Concomitant]
     Active Substance: AMPHETAMINE ASPARTATE\AMPHETAMINE SULFATE\DEXTROAMPHETAMINE SACCHARATE\DEXTROAMPHETAMINE SULFATE
  4. COCONUT OIL [Concomitant]
     Active Substance: COCONUT OIL
  5. VITAMIN D [Concomitant]
     Active Substance: CHOLECALCIFEROL
  6. PROBIOTICS [Concomitant]
     Active Substance: PROBIOTICS NOS
  7. ALOE JUICE [Concomitant]
  8. CLONIDINE. [Concomitant]
     Active Substance: CLONIDINE

REACTIONS (14)
  - Tic [None]
  - Anger [None]
  - Social avoidant behaviour [None]
  - Personality change [None]
  - Autism [None]
  - Social anxiety disorder [None]
  - Generalised anxiety disorder [None]
  - Oppositional defiant disorder [None]
  - Skin odour abnormal [None]
  - Obsessive-compulsive disorder [None]
  - Emotional disorder [None]
  - Nervous system disorder [None]
  - Learning disability [None]
  - Insomnia [None]

NARRATIVE: CASE EVENT DATE: 20070505
